FAERS Safety Report 17750689 (Version 4)
Quarter: 2020Q3

REPORT INFORMATION
  Report Type: Report from Study
  Country: FR (occurrence: FR)
  Receive Date: 20200506
  Receipt Date: 20200921
  Transmission Date: 20201102
  Serious: Yes (Hospitalization, Other)
  Sender: FDA-Public Use
  Company Number: FR-BRISTOL-MYERS SQUIBB COMPANY-BMS-2020-034923

PATIENT
  Age: 59 Year
  Sex: Male
  Weight: 78 kg

DRUGS (6)
  1. NIVOLUMAB [Suspect]
     Active Substance: NIVOLUMAB
     Indication: SQUAMOUS CELL CARCINOMA OF THE TONGUE
     Dosage: 240 MILLIGRAM
     Route: 042
     Dates: start: 20200221
  2. CISPLATIN. [Suspect]
     Active Substance: CISPLATIN
     Indication: SQUAMOUS CELL CARCINOMA OF THE TONGUE
     Dosage: 194 MILLIGRAM (100 MG/M2) CYCLE 1 DAY 1
     Route: 042
     Dates: start: 20200303
  3. CISPLATIN. [Suspect]
     Active Substance: CISPLATIN
     Dosage: 186 MILLIGRAM CYCLE 3 DAY 43
     Route: 042
     Dates: start: 20200414
  4. NIVOLUMAB [Suspect]
     Active Substance: NIVOLUMAB
     Dosage: 360 MILLIGRAM
     Route: 042
     Dates: start: 20200303
  5. CISPLATIN. [Suspect]
     Active Substance: CISPLATIN
     Dosage: 188 MILLIGRAM CYCLE 2 DAY 22
     Route: 042
     Dates: start: 20200324
  6. MORPHINE [Suspect]
     Active Substance: MORPHINE
     Indication: ANALGESIC THERAPY
     Dosage: UNK
     Route: 065

REACTIONS (9)
  - Upper respiratory tract infection [Unknown]
  - Staphylococcal infection [Unknown]
  - Stomatitis [Unknown]
  - Hypokalaemia [Unknown]
  - Anaemia [Unknown]
  - Confusional state [Recovered/Resolved]
  - Hypomagnesaemia [Unknown]
  - Somnolence [Unknown]
  - Neuralgia [Unknown]

NARRATIVE: CASE EVENT DATE: 20200416
